FAERS Safety Report 9504573 (Version 2)
Quarter: 2013Q3

REPORT INFORMATION
  Report Type: Spontaneous
  Country: JP (occurrence: JP)
  Receive Date: 20130906
  Receipt Date: 20130906
  Transmission Date: 20140515
  Serious: Yes (Other)
  Sender: FDA-Public Use
  Company Number: JP-VERTEX PHARMACEUTICALS INC-2013-003536

PATIENT
  Age: 62 Year
  Sex: Female

DRUGS (13)
  1. TELAVIC [Suspect]
     Indication: CHRONIC HEPATITIS C
     Dosage: 2250 MG, UNK
     Route: 048
     Dates: start: 20120712
  2. PEGINTERFERON ALFA-2B [Suspect]
     Indication: CHRONIC HEPATITIS C
     Dosage: 80 ?G, QW
     Route: 058
     Dates: start: 20120712, end: 20121220
  3. RIBAVIRIN [Suspect]
     Indication: CHRONIC HEPATITIS C
     Dosage: 600 MG, BID
     Route: 048
     Dates: start: 20120712, end: 20120808
  4. RIBAVIRIN [Suspect]
     Dosage: 400 UNK, UNK
     Route: 048
     Dates: start: 20120809, end: 20120815
  5. RIBAVIRIN [Suspect]
     Dosage: 200 MG, UNK
     Route: 048
     Dates: start: 20120816, end: 20121128
  6. RIBAVIRIN [Suspect]
     Dosage: 400 MG, UNK
     Route: 048
     Dates: start: 20121129, end: 20121226
  7. URSO [Concomitant]
     Dosage: 600 MG, UNK
     Route: 048
  8. NEOPHAGEN [Concomitant]
     Dosage: 6 TABS
     Route: 048
  9. GLYCYRRHIZINATE POTASSIUM [Concomitant]
     Dosage: UNK
  10. PARIET [Concomitant]
     Dosage: 10 MG, UNK
     Route: 048
  11. MUCOSTA [Concomitant]
     Dosage: 300 MG, UNK
     Route: 048
  12. MAGMITT [Concomitant]
     Dosage: 1780 MG, UNK
     Route: 048
  13. GASMOTIN [Concomitant]
     Dosage: 15 MG, UNK
     Route: 048
     Dates: start: 20121126

REACTIONS (3)
  - White blood cell count decreased [Recovered/Resolved]
  - Pyrexia [Recovered/Resolved]
  - Anaemia [Recovered/Resolved]
